FAERS Safety Report 7707881-4 (Version None)
Quarter: 2011Q3

REPORT INFORMATION
  Report Type: 
  Country: None (occurrence: None)
  Receive Date: 20110824
  Receipt Date: 20110817
  Transmission Date: 20111222
  Serious: No
  Sender: FDA-Public Use
  Company Number: US-BAYER-2011-074305

PATIENT
  Age: 45 Year
  Sex: Male

DRUGS (17)
  1. METOPROLOL [Concomitant]
  2. LEVITRA [Suspect]
     Dosage: UNK
     Dates: start: 20110318
  3. LYRICA [Concomitant]
  4. KLONOPIN [Concomitant]
  5. PROTONIX [Concomitant]
  6. LEVITRA [Suspect]
     Dosage: UNK
     Dates: start: 20110226
  7. CYMBALTA [Concomitant]
  8. SINVASTATINA MEPHA [Concomitant]
  9. METHOCARBAMOL [Concomitant]
  10. NAPROXEN [Concomitant]
  11. LIPOFENE [Concomitant]
  12. LIBRAX [Concomitant]
  13. TRAMADOL HCL [Concomitant]
  14. ACETAMINOPHEN [Concomitant]
  15. REQUIP [Concomitant]
  16. ASPIRIN [Concomitant]
  17. LEVITRA [Suspect]
     Dosage: UNK
     Dates: start: 20110403

REACTIONS (2)
  - DRUG INEFFECTIVE [None]
  - NO ADVERSE EVENT [None]
